FAERS Safety Report 9351673 (Version 1)
Quarter: 2013Q2

REPORT INFORMATION
  Report Type: Spontaneous
  Country: JP (occurrence: JP)
  Receive Date: 20130617
  Receipt Date: 20130617
  Transmission Date: 20140414
  Serious: Yes (Life-Threatening)
  Sender: FDA-Public Use
  Company Number: JP-SUCAMPO PHARMA AMERICAS, INC-SPI201300415

PATIENT
  Sex: Female

DRUGS (7)
  1. AMITIZA [Suspect]
     Indication: CONSTIPATION
     Dosage: 24 MCG, BID
     Route: 048
     Dates: start: 20130424
  2. LAXOBERON [Concomitant]
     Indication: CONSTIPATION
     Dosage: UNK
     Route: 048
     Dates: start: 201305
  3. LOXOPROFEN [Concomitant]
     Dosage: UNK
     Route: 048
     Dates: start: 201206
  4. REBAMIPIDE [Concomitant]
     Dosage: UNK
     Route: 048
     Dates: start: 201206
  5. EDIROL [Concomitant]
     Dosage: UNK
     Route: 048
     Dates: start: 201206
  6. SENNOSIDE [Concomitant]
     Dosage: UNK
     Route: 048
     Dates: start: 201206
  7. CILOSTAZOL [Concomitant]
     Dosage: UNK
     Route: 048

REACTIONS (1)
  - Blood pressure decreased [Recovered/Resolved]
